FAERS Safety Report 6240280-3 (Version None)
Quarter: 2009Q2

REPORT INFORMATION
  Report Type: 
  Country: None (occurrence: None)
  Receive Date: 20090623
  Receipt Date: 20080529
  Transmission Date: 20091009
  Serious: No
  Sender: FDA-Public Use
  Company Number: US-ASTRAZENECA-2008UW10915

PATIENT
  Age: 81 Year
  Sex: Female
  Weight: 38.6 kg

DRUGS (5)
  1. PULMICORT RESPULES [Suspect]
     Indication: EMPHYSEMA
     Route: 055
     Dates: start: 20071101
  2. PULMICORT RESPULES [Suspect]
     Indication: ASTHMA
     Route: 055
     Dates: start: 20071101
  3. ALBUTEROL [Concomitant]
  4. SYNTHROID [Concomitant]
  5. PLETAL [Concomitant]

REACTIONS (1)
  - OXYGEN SATURATION DECREASED [None]
